FAERS Safety Report 22864578 (Version 4)
Quarter: 2025Q4

REPORT INFORMATION
  Report Type: Report from Study
  Country: US (occurrence: US)
  Receive Date: 20230825
  Receipt Date: 20251011
  Transmission Date: 20260117
  Serious: Yes (Hospitalization)
  Sender: ABBVIE
  Company Number: US-ABBVIE-5380666

PATIENT
  Age: 79 Year
  Sex: Male

DRUGS (1)
  1. SKYRIZI [Suspect]
     Active Substance: RISANKIZUMAB-RZAA
     Indication: Psoriasis
     Route: 058
     Dates: start: 20230816

REACTIONS (3)
  - Spinal fracture [Not Recovered/Not Resolved]
  - Cardiac disorder [Unknown]
  - Psoriasis [Unknown]

NARRATIVE: CASE EVENT DATE: 20230816
